FAERS Safety Report 9574783 (Version 2)
Quarter: 2013Q4

REPORT INFORMATION
  Report Type: Spontaneous
  Country: US (occurrence: US)
  Receive Date: 20131001
  Receipt Date: 20131001
  Transmission Date: 20140711
  Serious: No
  Sender: FDA-Public Use
  Company Number: US-BANPHARM-20130876

PATIENT
  Age: 69 Year
  Sex: Female
  Weight: 99.79 kg

DRUGS (1)
  1. LOPERAMIDE HCL CAPSULES, 2 MG [Suspect]
     Indication: DIARRHOEA
     Dosage: PRN, UP TO 4 DF PER DAY FOR 3 DAYS,

REACTIONS (1)
  - Drug ineffective [Recovered/Resolved]
